FAERS Safety Report 5464013-3 (Version None)
Quarter: 2007Q3

REPORT INFORMATION
  Report Type: 
  Country: None (occurrence: None)
  Receive Date: 20070921
  Receipt Date: 20070912
  Transmission Date: 20080115
  Serious: Yes (Other)
  Sender: FDA-Public Use
  Company Number: US-NOVOPROD-266440

PATIENT

DRUGS (4)
  1. LEVEMIR [Suspect]
     Indication: TYPE 1 DIABETES MELLITUS
     Dosage: 20 IU, QD
     Route: 058
     Dates: start: 20070401, end: 20070401
  2. SYNTHROID [Concomitant]
     Indication: THYROID DISORDER
     Dates: start: 20070401
  3. ZOLOFT [Concomitant]
     Indication: DEPRESSION
     Dates: start: 20070401
  4. VITAMINS NOS [Concomitant]
     Indication: ILL-DEFINED DISORDER

REACTIONS (4)
  - CELLULITIS [None]
  - INJECTION SITE DISCOLOURATION [None]
  - PRURITUS [None]
  - RASH [None]
